FAERS Safety Report 4544667-6 (Version None)
Quarter: 2004Q4

REPORT INFORMATION
  Report Type: 
  Country: None (occurrence: None)
  Receive Date: 20041230
  Receipt Date: 20041221
  Transmission Date: 20050328
  Serious: Yes (Death)
  Sender: FDA-Public Use
  Company Number: B0329981A

PATIENT
  Age: 64 Year
  Sex: Female

DRUGS (2)
  1. ALKERAN [Suspect]
     Indication: MULTIPLE MYELOMA
     Dosage: ORAL
     Route: 048
  2. PREDNISOLONE [Concomitant]

REACTIONS (11)
  - ACUTE MEGAKARYOCYTIC LEUKAEMIA [None]
  - ANAEMIA [None]
  - CARDIAC MURMUR [None]
  - CEREBRAL HAEMORRHAGE [None]
  - MALAISE [None]
  - MYELOFIBROSIS [None]
  - PANCYTOPENIA [None]
  - PHARYNGEAL ERYTHEMA [None]
  - PURPURA [None]
  - PYREXIA [None]
  - THERAPY NON-RESPONDER [None]
